FAERS Safety Report 12941260 (Version 2)
Quarter: 2016Q4

REPORT INFORMATION
  Report Type: Spontaneous
  Country: US (occurrence: US)
  Receive Date: 20161115
  Receipt Date: 20161118
  Transmission Date: 20170207
  Serious: No
  Sender: FDA-Public Use
  Company Number: US-TEVA-710168USA

PATIENT
  Sex: Female

DRUGS (2)
  1. ROPINIROLE EXTENDED RELEASE TABLETS [Suspect]
     Active Substance: ROPINIROLE
     Route: 065
  2. AZILECT [Suspect]
     Active Substance: RASAGILINE MESYLATE
     Indication: PARKINSON^S DISEASE
     Dosage: .5 MILLIGRAM DAILY;
     Route: 065
     Dates: start: 2006

REACTIONS (4)
  - Aggression [None]
  - Adverse event [Unknown]
  - Obsessive-compulsive disorder [Unknown]
  - Dyskinesia [Unknown]
